FAERS Safety Report 19705838 (Version 8)
Quarter: 2023Q2

REPORT INFORMATION
  Report Type: Report from Study
  Country: US (occurrence: US)
  Receive Date: 20210817
  Receipt Date: 20230516
  Transmission Date: 20230722
  Serious: Yes (Hospitalization)
  Sender: FDA-Public Use
  Company Number: US-AMGEN-USACT2021040083

PATIENT
  Age: 64 Year
  Sex: Male
  Weight: 71.1 kg

DRUGS (9)
  1. SOTORASIB [Suspect]
     Active Substance: SOTORASIB
     Indication: K-ras gene mutation
     Dosage: 960 MILLIGRAM
     Route: 048
     Dates: start: 20191202
  2. SOTORASIB [Suspect]
     Active Substance: SOTORASIB
     Indication: Non-small cell lung cancer stage IV
  3. GUAIFENESIN [Concomitant]
     Active Substance: GUAIFENESIN
     Dosage: 5 MILLILITER
     Route: 048
     Dates: start: 20191210
  4. LEVOFLOXACIN [Concomitant]
     Active Substance: LEVOFLOXACIN
     Dosage: 750 MILLIGRAM
     Route: 048
     Dates: start: 20200226, end: 20210309
  5. ALBUTEROL SULFATE [Concomitant]
     Active Substance: ALBUTEROL SULFATE
     Dosage: 90 MILLIGRAM
     Route: 048
     Dates: start: 20200902
  6. CODEINE\GUAIFENESIN [Concomitant]
     Active Substance: CODEINE\GUAIFENESIN
     Dosage: 5 MILLILITER
     Route: 048
     Dates: start: 20210106
  7. HALOBETASOL PROPIONATE [Concomitant]
     Active Substance: HALOBETASOL PROPIONATE
     Dosage: 01 UNK
     Route: 061
     Dates: start: 20200924
  8. ASPIRIN [Concomitant]
     Active Substance: ASPIRIN
     Dosage: 81 MILLIGRAM
     Dates: start: 20210306
  9. COVID-19 vaccine [Concomitant]
     Dosage: 1 UNK
     Route: 030
     Dates: start: 20210303, end: 20210303

REACTIONS (1)
  - Haemolytic anaemia [Recovered/Resolved]

NARRATIVE: CASE EVENT DATE: 20210311
